FAERS Safety Report 6427469-5 (Version None)
Quarter: 2009Q4

REPORT INFORMATION
  Report Type: 
  Country: None (occurrence: None)
  Receive Date: 20091104
  Receipt Date: 20091022
  Transmission Date: 20100525
  Serious: Yes (Other)
  Sender: FDA-Public Use
  Company Number: PHHY2009BR46066

PATIENT
  Sex: Female

DRUGS (2)
  1. DIOVAN AMLO FIX [Suspect]
     Dosage: 320/5 MG, 1 TABLET DAILY
     Route: 065
  2. EUTHROID-1 [Concomitant]
     Indication: THYROID NEOPLASM
     Dosage: 50 MCG, 1 TABLET DAILY
     Route: 048

REACTIONS (5)
  - BLOOD PRESSURE INADEQUATELY CONTROLLED [None]
  - BLOOD PRESSURE INCREASED [None]
  - CATARACT [None]
  - DYSGEUSIA [None]
  - INSOMNIA [None]
